FAERS Safety Report 9002432 (Version 2)
Quarter: 2013Q1

REPORT INFORMATION
  Report Type: Spontaneous
  Country: US (occurrence: None)
  Receive Date: 20121226
  Receipt Date: 20130131
  Transmission Date: 20140127
  Serious: Yes (Death)
  Sender: FDA-Public Use
  Company Number: 2012-692

PATIENT
  Age: 39 Year
  Sex: Male

DRUGS (3)
  1. PRIALT [Suspect]
     Dosage: ONCE/HOUR
     Route: 037
     Dates: start: 20120411, end: 201212
  2. BUPIVACAINE HYDROCHLORIDE [Suspect]
     Dosage: ONCE/HOUR
     Route: 037
     Dates: end: 201212
  3. BACLOFEN [Suspect]
     Dosage: ONCE/HOUR
     Route: 037
     Dates: end: 201212

REACTIONS (3)
  - Renal failure [None]
  - Urosepsis [None]
  - Multi-organ failure [None]
